FAERS Safety Report 4960176-4 (Version None)
Quarter: 2006Q1

REPORT INFORMATION
  Report Type: 
  Country: None (occurrence: None)
  Receive Date: 20060331
  Receipt Date: 20060320
  Transmission Date: 20060701
  Serious: Yes (Other)
  Sender: FDA-Public Use
  Company Number: GB-ABBOTT-06P-167-0328550-00

PATIENT
  Age: 50 Year
  Sex: Female

DRUGS (1)
  1. EPILIM CHRONO TABLETS [Suspect]
     Indication: MANIA
     Route: 048

REACTIONS (2)
  - DRUG INEFFECTIVE [None]
  - MEDICATION RESIDUE [None]
